FAERS Safety Report 6177534-5 (Version None)
Quarter: 2009Q2

REPORT INFORMATION
  Report Type: 
  Country: None (occurrence: None)
  Receive Date: 20090504
  Receipt Date: 20090424
  Transmission Date: 20091009
  Serious: Yes (Hospitalization, Other)
  Sender: FDA-Public Use
  Company Number: US-PFIZER INC-2005129958

PATIENT
  Sex: Female
  Weight: 68 kg

DRUGS (7)
  1. PROVERA [Suspect]
     Indication: HORMONE REPLACEMENT THERAPY
     Dosage: 10 MG, 1X/DAY
     Route: 048
     Dates: start: 19920101, end: 19930101
  2. PREMARIN [Suspect]
     Indication: HORMONE REPLACEMENT THERAPY
     Dosage: 0.625 MG, 1X/DAY
     Dates: start: 19920101, end: 19930101
  3. PREMPRO [Suspect]
     Indication: HORMONE REPLACEMENT THERAPY
     Dosage: UNK
     Dates: start: 19930101, end: 20020531
  4. LIPITOR [Concomitant]
     Indication: HYPERLIPIDAEMIA
     Dosage: UNK
     Dates: start: 20000601
  5. VASOTEC [Concomitant]
     Indication: HYPERTENSION
     Dosage: UNK
     Dates: start: 20010101
  6. HYDROCHLORZIDE [Concomitant]
     Indication: HYPERTENSION
     Dosage: UNK
     Dates: start: 20011001
  7. CLARITIN [Concomitant]
     Indication: COUGH
     Dosage: UNK
     Dates: start: 20010101

REACTIONS (1)
  - BREAST CANCER FEMALE [None]
